FAERS Safety Report 9821224 (Version 2)
Quarter: 2014Q1

REPORT INFORMATION
  Report Type: Spontaneous
  Country: US (occurrence: US)
  Receive Date: 20140116
  Receipt Date: 20140116
  Transmission Date: 20141002
  Serious: Yes (Other)
  Sender: FDA-Public Use
  Company Number: US-GILEAD-2010-0033356

PATIENT
  Sex: Female

DRUGS (7)
  1. LETAIRIS [Suspect]
     Indication: PULMONARY ARTERIAL HYPERTENSION
     Route: 048
     Dates: start: 20090210, end: 20090611
  2. VERAPAMIL [Concomitant]
  3. ATENOLOL [Concomitant]
  4. LISINOPRIL [Concomitant]
  5. WARFARIN [Concomitant]
  6. METFORMIN [Concomitant]
  7. ALLOPURINOL [Concomitant]

REACTIONS (1)
  - Drug ineffective [Unknown]
